FAERS Safety Report 10191153 (Version 6)
Quarter: 2015Q3

REPORT INFORMATION
  Report Type: Spontaneous
  Country: US (occurrence: US)
  Receive Date: 20140523
  Receipt Date: 20150924
  Transmission Date: 20151125
  Serious: Yes (Hospitalization, Disabling, Other)
  Sender: FDA-Public Use
  Company Number: US-009507513-1405USA011445

PATIENT
  Sex: Male

DRUGS (9)
  1. FOSAMAX [Suspect]
     Active Substance: ALENDRONATE SODIUM
     Indication: OSTEOPOROSIS
     Dosage: 70 MG, QD
     Route: 048
  2. FOSAMAX [Suspect]
     Active Substance: ALENDRONATE SODIUM
     Dosage: UNK
     Route: 048
     Dates: start: 20061211, end: 20071230
  3. ALENDRONATE SODIUM. [Suspect]
     Active Substance: ALENDRONATE SODIUM
     Indication: CROHN^S DISEASE
  4. ALENDRONATE SODIUM. [Suspect]
     Active Substance: ALENDRONATE SODIUM
     Dosage: 10 MG, UNK
     Dates: start: 20080305, end: 20110107
  5. FOSAMAX [Suspect]
     Active Substance: ALENDRONATE SODIUM
     Indication: OSTEOPENIA
     Dosage: 10 MG, QD
     Route: 048
     Dates: start: 199509, end: 20080205
  6. ALENDRONATE SODIUM. [Suspect]
     Active Substance: ALENDRONATE SODIUM
     Indication: OSTEOPOROSIS PROPHYLAXIS
     Dosage: 10 MG, QD
     Route: 048
     Dates: start: 200802, end: 201101
  7. FOSAMAX [Suspect]
     Active Substance: ALENDRONATE SODIUM
     Indication: OSTEOPOROSIS PROPHYLAXIS
     Dosage: 70 MG, QW
     Route: 048
     Dates: start: 2007, end: 2007
  8. FOSAMAX [Suspect]
     Active Substance: ALENDRONATE SODIUM
     Indication: CROHN^S DISEASE
     Dosage: 35 MG, UNK
     Route: 048
     Dates: start: 20020626, end: 2002
  9. ALENDRONATE SODIUM. [Suspect]
     Active Substance: ALENDRONATE SODIUM
     Indication: OSTEOPOROSIS

REACTIONS (36)
  - Calcium deficiency [Unknown]
  - Back pain [Unknown]
  - Fracture nonunion [Not Recovered/Not Resolved]
  - Leukocytosis [Unknown]
  - Basal cell carcinoma [Unknown]
  - Femur fracture [Not Recovered/Not Resolved]
  - Vitamin D deficiency [Unknown]
  - Dry eye [Unknown]
  - Irritable bowel syndrome [Unknown]
  - Fracture nonunion [Recovering/Resolving]
  - Impaired healing [Unknown]
  - Arthritis [Unknown]
  - Osteoporosis [Not Recovered/Not Resolved]
  - Depression [Not Recovered/Not Resolved]
  - Foot fracture [Unknown]
  - Crohn^s disease [Not Recovered/Not Resolved]
  - Foot fracture [Unknown]
  - Hypertension [Unknown]
  - Hypernatraemia [Unknown]
  - Squamous cell carcinoma of skin [Unknown]
  - Blood cholesterol increased [Unknown]
  - Anaemia [Unknown]
  - Arthropathy [Unknown]
  - Vitamin B complex deficiency [Unknown]
  - Anxiety [Not Recovered/Not Resolved]
  - Fracture nonunion [Unknown]
  - Road traffic accident [Unknown]
  - Pneumonia [Unknown]
  - Femur fracture [Not Recovered/Not Resolved]
  - Constipation [Unknown]
  - Off label use [Unknown]
  - Crohn^s disease [Not Recovered/Not Resolved]
  - Femur fracture [Not Recovered/Not Resolved]
  - Inappropriate schedule of drug administration [Unknown]
  - Steroid therapy [Unknown]
  - Leukocytosis [Recovering/Resolving]

NARRATIVE: CASE EVENT DATE: 1998
